FAERS Safety Report 9300559 (Version 4)
Quarter: 2013Q3

REPORT INFORMATION
  Report Type: Spontaneous
  Country: US (occurrence: US)
  Receive Date: 20130521
  Receipt Date: 20130828
  Transmission Date: 20140515
  Serious: Yes (Other)
  Sender: FDA-Public Use
  Company Number: US-PFIZER INC-2013151732

PATIENT
  Age: 72 Year
  Sex: Male

DRUGS (3)
  1. INLYTA [Suspect]
     Indication: METASTATIC RENAL CELL CARCINOMA
     Dosage: 5 MG, 2X/DAY
     Route: 048
     Dates: start: 20130110
  2. INLYTA [Suspect]
     Indication: RENAL CANCER
     Dosage: 5 MG, TWICE DAILY
     Route: 048
     Dates: start: 20130111
  3. INLYTA [Suspect]
     Indication: MALIGNANT URINARY TRACT NEOPLASM
     Dosage: 5 MG, 2X/DAY
     Route: 048
     Dates: start: 201301

REACTIONS (10)
  - Haemorrhage [Unknown]
  - Diverticulitis [Unknown]
  - Aortic disorder [Unknown]
  - Haemorrhage subcutaneous [Unknown]
  - Disease progression [Unknown]
  - Metastatic renal cell carcinoma [Unknown]
  - Diarrhoea [Unknown]
  - Contusion [Not Recovered/Not Resolved]
  - Fatigue [Unknown]
  - Cough [Recovering/Resolving]
